FAERS Safety Report 6083906-X (Version None)
Quarter: 2009Q1

REPORT INFORMATION
  Report Type: 
  Country: None (occurrence: None)
  Receive Date: 20090217
  Receipt Date: 20090217
  Transmission Date: 20090719
  Serious: Yes (Other)
  Sender: FDA-Public Use
  Company Number: None

PATIENT
  Age: 66 Year
  Sex: Male
  Weight: 94.3482 kg

DRUGS (12)
  1. RANEXA [Suspect]
     Indication: ANGINA PECTORIS
     Dosage: 500 MG (X2) BID PO
     Route: 048
     Dates: start: 20080506, end: 20081023
  2. SYNTHROID [Concomitant]
  3. PREVACID [Concomitant]
  4. ACEON [Concomitant]
  5. AMIODARONE [Concomitant]
  6. COREG CR [Concomitant]
  7. SIMVASTIN [Concomitant]
  8. WARFARIN [Concomitant]
  9. ZYRTEC [Concomitant]
  10. NITROGLYCERIN S/L [Concomitant]
  11. 81 ASA [Concomitant]
  12. MULTIVIT + C [Concomitant]

REACTIONS (2)
  - RASH ERYTHEMATOUS [None]
  - SKIN DISCOLOURATION [None]
